FAERS Safety Report 25221851 (Version 1)
Quarter: 2025Q2

REPORT INFORMATION
  Report Type: Spontaneous
  Country: US (occurrence: None)
  Receive Date: 20250421
  Receipt Date: 20250421
  Transmission Date: 20250716
  Serious: Yes (Other)
  Sender: FDA-CTU
  Company Number: None

PATIENT
  Age: 60 Year
  Sex: Female
  Weight: 109 kg

DRUGS (1)
  1. VENOFER [Suspect]
     Active Substance: IRON SUCROSE
     Indication: Iron deficiency anaemia
     Route: 042
     Dates: start: 20250412, end: 20250412

REACTIONS (5)
  - Dyspnoea [None]
  - Chest discomfort [None]
  - Dizziness [None]
  - Nausea [None]
  - Drug hypersensitivity [None]

NARRATIVE: CASE EVENT DATE: 20250412
